FAERS Safety Report 6914425-3 (Version None)
Quarter: 2010Q3

REPORT INFORMATION
  Report Type: 
  Country: None (occurrence: None)
  Receive Date: 20100809
  Receipt Date: 20100728
  Transmission Date: 20110219
  Serious: Yes (Other)
  Sender: FDA-Public Use
  Company Number: NO-PFIZER INC-2010095088

PATIENT
  Sex: Male

DRUGS (2)
  1. SALAZOPYRIN [Suspect]
     Indication: ANKYLOSING SPONDYLITIS
     Dosage: 1000 MG, 2X/DAY
  2. TRAMADOL HCL [Suspect]

REACTIONS (3)
  - DRUG WITHDRAWAL SYNDROME [None]
  - HEADACHE [None]
  - RESTLESS LEGS SYNDROME [None]
